FAERS Safety Report 6840246-6 (Version None)
Quarter: 2010Q3

REPORT INFORMATION
  Report Type: 
  Country: None (occurrence: None)
  Receive Date: 20100714
  Receipt Date: 20100708
  Transmission Date: 20110219
  Serious: Yes (Hospitalization)
  Sender: FDA-Public Use
  Company Number: PHHY2010VE45125

PATIENT
  Sex: Female

DRUGS (2)
  1. FORADILE [Suspect]
     Indication: CHRONIC OBSTRUCTIVE PULMONARY DISEASE
     Dosage: TWICE A DAY
  2. BUDESONIDE [Concomitant]

REACTIONS (2)
  - INFLUENZA [None]
  - PNEUMONIA [None]
